FAERS Safety Report 7002692-X (Version None)
Quarter: 2010Q3

REPORT INFORMATION
  Report Type: 
  Country: None (occurrence: None)
  Receive Date: 20100917
  Receipt Date: 20100917
  Transmission Date: 20110219
  Serious: No
  Sender: FDA-Public Use
  Company Number: None

PATIENT
  Sex: Male
  Weight: 62.7 kg

DRUGS (15)
  1. MEMANTINE HYDROCHLORIDE [Suspect]
     Indication: LUNG NEOPLASM MALIGNANT
     Dosage: 1290 MG
     Dates: start: 20100520
  2. MEMANTINE HYDROCHLORIDE [Suspect]
     Indication: METASTASES TO CENTRAL NERVOUS SYSTEM
     Dosage: 1290 MG
     Dates: start: 20100520
  3. MEMANTINE HYDROCHLORIDE [Suspect]
     Indication: METASTASES TO LUNG
     Dosage: 1290 MG
     Dates: start: 20100520
  4. DECADRON [Concomitant]
  5. FLAGYL [Concomitant]
  6. FOLIC ACID [Concomitant]
  7. KEFLEX [Concomitant]
  8. KEPPRA [Concomitant]
  9. LASIX [Concomitant]
  10. LIPITOR [Concomitant]
  11. MULTI-VITAMIN [Concomitant]
  12. REGULAR INSULIN [Concomitant]
  13. VANCOMYCIN [Concomitant]
  14. VITAMIN B [Concomitant]
  15. CITALOPRAM HYDROBROMIDE [Concomitant]

REACTIONS (6)
  - APHAGIA [None]
  - CLOSTRIDIAL INFECTION [None]
  - FLUID INTAKE REDUCED [None]
  - HYPOALBUMINAEMIA [None]
  - HYPONATRAEMIA [None]
  - URINE OUTPUT DECREASED [None]
